FAERS Safety Report 12578757 (Version 3)
Quarter: 2016Q3

REPORT INFORMATION
  Report Type: Spontaneous
  Country: US (occurrence: US)
  Receive Date: 20160721
  Receipt Date: 20160819
  Transmission Date: 20161109
  Serious: Yes (Hospitalization)
  Sender: FDA-Public Use
  Company Number: US-ELI_LILLY_AND_COMPANY-US201607007096

PATIENT
  Age: 59 Year
  Sex: Male
  Weight: 118.37 kg

DRUGS (10)
  1. AXIRON [Suspect]
     Active Substance: TESTOSTERONE
     Dosage: 60 MG, QOD
     Route: 061
     Dates: start: 20141125
  2. KRILL OIL                          /01334101/ [Concomitant]
     Indication: GENERAL PHYSICAL CONDITION
     Dosage: UNK, UNKNOWN
     Route: 065
     Dates: start: 201410
  3. AXIRON [Suspect]
     Active Substance: TESTOSTERONE
     Indication: ANDROGEN DEFICIENCY
     Dosage: 120 MG, QD
     Route: 061
     Dates: start: 20140723
  4. AXIRON [Suspect]
     Active Substance: TESTOSTERONE
     Dosage: 30 MG, QOD
     Route: 061
     Dates: start: 20141125
  5. ANDRODERM [Suspect]
     Active Substance: TESTOSTERONE
     Indication: ANDROGEN REPLACEMENT THERAPY
     Dosage: 2 MG, QOD
     Route: 065
     Dates: start: 20130513, end: 20130915
  6. AXIRON [Suspect]
     Active Substance: TESTOSTERONE
     Indication: ANDROGEN REPLACEMENT THERAPY
     Dosage: UNK UNK, QD
     Route: 065
     Dates: start: 201305, end: 201503
  7. ANDRODERM [Suspect]
     Active Substance: TESTOSTERONE
     Indication: ANDROGEN DEFICIENCY
  8. LISINOPRIL. [Concomitant]
     Active Substance: LISINOPRIL
     Indication: HYPERTENSION
     Dosage: 40 MG, QD
     Route: 048
     Dates: start: 20140211
  9. FISH OIL [Concomitant]
     Active Substance: FISH OIL
     Indication: GENERAL PHYSICAL CONDITION
     Dosage: UNK, UNKNOWN
     Route: 065
     Dates: start: 2012, end: 201409
  10. OCUVITE [Concomitant]
     Active Substance: VITAMINS
     Indication: VISUAL IMPAIRMENT
     Dosage: UNK, UNKNOWN
     Route: 065
     Dates: start: 2010

REACTIONS (1)
  - Ischaemic cerebral infarction [Not Recovered/Not Resolved]

NARRATIVE: CASE EVENT DATE: 20141009
